FAERS Safety Report 7772702-0 (Version None)
Quarter: 2011Q3

REPORT INFORMATION
  Report Type: 
  Country: None (occurrence: None)
  Receive Date: 20110922
  Receipt Date: 20100311
  Transmission Date: 20111222
  Serious: No
  Sender: FDA-Public Use
  Company Number: US-ASTRAZENECA-2009UW20585

PATIENT
  Age: 44 Year
  Sex: Female
  Weight: 111.1 kg

DRUGS (8)
  1. ABILIFY [Concomitant]
  2. TRAZODONE HYDROCHLORIDE [Concomitant]
  3. VALIUM [Concomitant]
     Indication: ANXIETY
     Dosage: PO BID PRN
     Route: 048
     Dates: start: 20070207
  4. ZOLOFT [Concomitant]
     Dates: start: 20070207
  5. SEROQUEL [Suspect]
     Route: 048
     Dates: start: 20060816
  6. THORAZINE [Concomitant]
     Route: 048
     Dates: start: 20070207
  7. CYMBALTA [Concomitant]
     Indication: DEPRESSION
  8. SEROQUEL [Suspect]
     Indication: DEPRESSION
     Route: 048
     Dates: start: 20020101, end: 20070101

REACTIONS (2)
  - TYPE 2 DIABETES MELLITUS [None]
  - OBESITY [None]
